FAERS Safety Report 12020685 (Version 1)
Quarter: 2016Q1

REPORT INFORMATION
  Report Type: Report from Study
  Country: US (occurrence: US)
  Receive Date: 20160206
  Receipt Date: 20160206
  Transmission Date: 20160526
  Serious: Yes (Other)
  Sender: FDA-Public Use
  Company Number: US-ABBVIE-15K-163-1465936-00

PATIENT
  Age: 45 Year
  Sex: Male

DRUGS (3)
  1. HUMIRA [Suspect]
     Active Substance: ADALIMUMAB
     Indication: PSORIASIS
     Route: 065
     Dates: end: 201301
  2. HUMIRA [Suspect]
     Active Substance: ADALIMUMAB
     Route: 065
     Dates: start: 201506
  3. HUMIRA [Suspect]
     Active Substance: ADALIMUMAB
     Indication: ARTHRITIS
     Route: 065
     Dates: start: 2013, end: 201305

REACTIONS (16)
  - Arthropathy [Not Recovered/Not Resolved]
  - Skin exfoliation [Unknown]
  - Disturbance in attention [Not Recovered/Not Resolved]
  - Hypoaesthesia [Unknown]
  - Knee operation [Recovered/Resolved]
  - Device issue [Unknown]
  - Post procedural infection [Recovered/Resolved]
  - Pruritus [Unknown]
  - Arthritis [Not Recovered/Not Resolved]
  - Device issue [Unknown]
  - Device issue [Unknown]
  - Balance disorder [Not Recovered/Not Resolved]
  - Arthritis [Unknown]
  - Staphylococcal infection [Recovered/Resolved]
  - Incorrect dose administered [Unknown]
  - Incorrect dose administered [Unknown]

NARRATIVE: CASE EVENT DATE: 2013
